FAERS Safety Report 9565114 (Version 1)
Quarter: 2013Q3

REPORT INFORMATION
  Report Type: Spontaneous
  Country: US (occurrence: US)
  Receive Date: 20130930
  Receipt Date: 20130930
  Transmission Date: 20140515
  Serious: Yes (Death, Hospitalization, Other)
  Sender: FDA-Public Use
  Company Number: US-PFIZER INC-2013277995

PATIENT
  Age: 41 Year
  Sex: Female

DRUGS (2)
  1. LYRICA [Suspect]
     Dosage: UNK
  2. CHANTIX [Suspect]
     Dosage: UNK

REACTIONS (2)
  - Death [Fatal]
  - Myocardial infarction [Unknown]
